FAERS Safety Report 5176796-0 (Version None)
Quarter: 2006Q4

REPORT INFORMATION
  Report Type: 
  Country: None (occurrence: None)
  Receive Date: 20061218
  Receipt Date: 20061205
  Transmission Date: 20070319
  Serious: Yes (Hospitalization)
  Sender: FDA-Public Use
  Company Number: SEWYE766807DEC06

PATIENT
  Sex: Male

DRUGS (6)
  1. ENBREL [Suspect]
     Indication: ANKYLOSING SPONDYLITIS
     Route: 051
     Dates: start: 20041001
  2. LASIX [Concomitant]
     Indication: HYPERTENSION
     Route: 065
  3. ZOPICLONE [Concomitant]
     Route: 065
  4. VOLTAREN [Concomitant]
     Indication: ANKYLOSING SPONDYLITIS
     Route: 065
  5. NORVASC [Concomitant]
     Indication: HYPERTENSION
     Route: 065
  6. COZAAR [Concomitant]
     Indication: HYPERTENSION
     Route: 065

REACTIONS (3)
  - CORONARY ARTERY STENOSIS [None]
  - ELECTROCARDIOGRAM ST SEGMENT ELEVATION [None]
  - MYOCARDIAL INFARCTION [None]
